FAERS Safety Report 13337434 (Version 1)
Quarter: 2017Q1

REPORT INFORMATION
  Report Type: Spontaneous
  Country: CH (occurrence: CH)
  Receive Date: 20170315
  Receipt Date: 20170315
  Transmission Date: 20170428
  Serious: Yes (Hospitalization)
  Sender: FDA-Public Use
  Company Number: PHHY2017CH037408

PATIENT
  Age: 22 Year
  Sex: Female
  Weight: 49 kg

DRUGS (3)
  1. GYSELLE [Concomitant]
     Active Substance: ETHINYL ESTRADIOL\GESTODENE
     Indication: PRODUCT USED FOR UNKNOWN INDICATION
     Dosage: UNK
     Route: 065
     Dates: start: 2012, end: 201702
  2. RITALIN [Suspect]
     Active Substance: METHYLPHENIDATE HYDROCHLORIDE
     Indication: ATTENTION DEFICIT/HYPERACTIVITY DISORDER
     Dosage: UNK
     Route: 065
     Dates: start: 2009, end: 2014
  3. IMIGRAN [Suspect]
     Active Substance: SUMATRIPTAN SUCCINATE
     Indication: MIGRAINE WITHOUT AURA
     Dosage: 1 DF, QMO
     Route: 065

REACTIONS (1)
  - Pulmonary hypertension [Not Recovered/Not Resolved]

NARRATIVE: CASE EVENT DATE: 20170209
